FAERS Safety Report 6838750-X (Version None)
Quarter: 2010Q3

REPORT INFORMATION
  Report Type: 
  Country: None (occurrence: None)
  Receive Date: 20100713
  Receipt Date: 20070608
  Transmission Date: 20110219
  Serious: No
  Sender: FDA-Public Use
  Company Number: US-PFIZER INC-2007046212

PATIENT
  Sex: Female
  Weight: 59 kg

DRUGS (6)
  1. CHANTIX [Suspect]
     Indication: SMOKING CESSATION THERAPY
     Dates: start: 20070506, end: 20070513
  2. SPIRIVA [Concomitant]
  3. ALBUTEROL [Concomitant]
     Route: 055
  4. COMBIVENT [Concomitant]
     Route: 055
  5. ALBUTEROL [Concomitant]
     Route: 055
  6. OXYGEN [Concomitant]

REACTIONS (4)
  - DYSPNOEA [None]
  - MALAISE [None]
  - NAUSEA [None]
  - NERVOUSNESS [None]
